FAERS Safety Report 9291065 (Version 2)
Quarter: 2013Q3

REPORT INFORMATION
  Report Type: Spontaneous
  Country: US (occurrence: US)
  Receive Date: 20130515
  Receipt Date: 20130820
  Transmission Date: 20140515
  Serious: Yes (Other)
  Sender: FDA-Public Use
  Company Number: US-ASTRAZENECA-2013SE31986

PATIENT
  Age: 62 Year
  Sex: Male
  Weight: 77.1 kg

DRUGS (19)
  1. SYMBICORT [Suspect]
     Indication: CHRONIC OBSTRUCTIVE PULMONARY DISEASE
     Dosage: 160/4.5 MCG 2 PUFFS BID
     Route: 055
     Dates: start: 2005
  2. OMEPRAZOLE [Suspect]
     Indication: DYSPEPSIA
     Route: 048
     Dates: start: 1993
  3. ALPRAZOLAM [Concomitant]
     Indication: ANXIETY
     Route: 048
     Dates: start: 1973
  4. SPIRIVA [Concomitant]
     Indication: CHRONIC OBSTRUCTIVE PULMONARY DISEASE
     Dates: start: 2005
  5. MUCINEX [Concomitant]
     Indication: CHRONIC OBSTRUCTIVE PULMONARY DISEASE
     Dates: start: 2005
  6. ALBUTEROL SULFATE [Concomitant]
     Dosage: NEBULIZER TREATMENT, EVERY 4 HOURS
  7. PROAIR HFA [Concomitant]
     Dosage: AS NEEDED (WHICH IS ABOUT TWICE A WEEK)
  8. PREDNISONE [Concomitant]
     Indication: BRONCHITIS
     Dosage: TIME FROM TIME
  9. PREDNISONE [Concomitant]
     Indication: BRONCHITIS
     Dates: start: 201304
  10. CREON [Concomitant]
     Indication: DYSPEPSIA
     Dates: start: 2008
  11. ESCITALOPRAM [Concomitant]
     Dates: start: 2013
  12. MORPHINE [Concomitant]
     Indication: PANCREATITIS CHRONIC
     Dosage: CONTINUOUS DRIP VIA A SPINAL PUMP
  13. MORPHINE [Concomitant]
     Indication: ABDOMINAL PAIN UPPER
     Dosage: CONTINUOUS DRIP VIA A SPINAL PUMP
  14. HYDROCODONE WITH ACETAMINOPHEN [Concomitant]
     Indication: ABDOMINAL PAIN UPPER
     Dosage: IN MORNING
  15. SUCRALFATE [Concomitant]
     Dosage: ONE HOUR BEFORE MEALS
  16. ONDANSETRON [Concomitant]
     Indication: NAUSEA
     Dosage: AS NEEDED, WHICH IS NOT OFTEN
  17. ASPIRIN [Concomitant]
  18. ATORVASTATIN [Concomitant]
  19. OXYGEN [Concomitant]

REACTIONS (8)
  - Cataract [Recovered/Resolved]
  - Pancreatitis [Not Recovered/Not Resolved]
  - Visual impairment [Recovered/Resolved]
  - Chronic obstructive pulmonary disease [Not Recovered/Not Resolved]
  - Bronchitis [Unknown]
  - Coronary artery occlusion [Unknown]
  - Peripheral arterial occlusive disease [Unknown]
  - Nausea [Unknown]
